FAERS Safety Report 4648371-5 (Version None)
Quarter: 2005Q2

REPORT INFORMATION
  Report Type: 
  Country: None (occurrence: None)
  Receive Date: 20050427
  Receipt Date: 20050419
  Transmission Date: 20051028
  Serious: No
  Sender: FDA-Public Use
  Company Number: 2005-127575-NL

PATIENT
  Age: 2 Month
  Sex: Female

DRUGS (3)
  1. VECURONIUM [Suspect]
     Indication: LIFE SUPPORT
     Dosage: DF , INTRAVENOUS DRIP
     Route: 041
  2. MIDAZOLAM [Concomitant]
  3. PREDNISOLONE [Concomitant]

REACTIONS (1)
  - NEUROMUSCULAR BLOCK PROLONGED [None]
